FAERS Safety Report 7730047-9 (Version None)
Quarter: 2011Q3

REPORT INFORMATION
  Report Type: 
  Country: None (occurrence: None)
  Receive Date: 20110906
  Receipt Date: 20110830
  Transmission Date: 20111222
  Serious: Yes (Death, Hospitalization, Other)
  Sender: FDA-Public Use
  Company Number: JP-SANOFI-AVENTIS-2011SA043948

PATIENT
  Age: 57 Year
  Sex: Male
  Weight: 71.3 kg

DRUGS (19)
  1. ESTRACYT [Concomitant]
     Indication: PROSTATE CANCER
     Route: 048
     Dates: start: 20090522, end: 20091105
  2. TAXOTERE [Suspect]
     Indication: PROSTATE CANCER
     Route: 041
     Dates: start: 20080111
  3. TAXOTERE [Suspect]
     Route: 041
     Dates: start: 20081107
  4. LEUPROLIDE ACETATE [Concomitant]
     Indication: PROSTATE CANCER
     Dates: start: 20061122
  5. TAXOTERE [Suspect]
     Route: 041
  6. ZOMETA [Concomitant]
     Indication: PROSTATE CANCER
     Dosage: EVERY 3 MONTHS
     Route: 041
     Dates: start: 20080215, end: 20090925
  7. MOBIC [Concomitant]
     Indication: PROSTATE CANCER
     Route: 048
     Dates: start: 20081226, end: 20090902
  8. TAXOTERE [Suspect]
     Route: 041
     Dates: start: 20090224, end: 20090717
  9. DECADRON [Concomitant]
  10. SEROTONE [Concomitant]
     Indication: PREMEDICATION
  11. LEUPROLIDE ACETATE [Concomitant]
     Dates: end: 20100826
  12. DECADRON [Concomitant]
     Indication: PROSTATE CANCER
     Dates: start: 20070926, end: 20080109
  13. TAXOTERE [Suspect]
     Route: 041
     Dates: start: 20080815, end: 20081010
  14. TAXOTERE [Suspect]
     Route: 041
     Dates: end: 20080718
  15. PREDNISOLONE [Concomitant]
     Indication: PROSTATE CANCER
     Route: 048
     Dates: start: 20080110, end: 20091203
  16. DECADRON [Concomitant]
     Indication: PREMEDICATION
     Dates: start: 20070926, end: 20080109
  17. LEUPROLIDE ACETATE [Concomitant]
     Dosage: EVERY 3 MONTHS
     Route: 058
     Dates: start: 20080215, end: 20090528
  18. TAXOTERE [Suspect]
     Route: 041
     Dates: start: 20090814, end: 20091106
  19. DECADRON [Concomitant]

REACTIONS (6)
  - NEUTROPENIA [None]
  - GASTRIC ULCER [None]
  - VOMITING [None]
  - OEDEMA [None]
  - DISEASE PROGRESSION [None]
  - HAEMATOCHEZIA [None]
